FAERS Safety Report 5757364-6 (Version None)
Quarter: 2008Q2

REPORT INFORMATION
  Report Type: 
  Country: None (occurrence: None)
  Receive Date: 20080603
  Receipt Date: 20080530
  Transmission Date: 20081010
  Serious: Yes (Other)
  Sender: FDA-Public Use
  Company Number: US-ASTRAZENECA-2008UW10473

PATIENT
  Age: 83 Year
  Sex: Female
  Weight: 72.6 kg

DRUGS (5)
  1. CRESTOR [Suspect]
     Indication: BLOOD CHOLESTEROL INCREASED
     Route: 048
  2. SYNTHROID [Concomitant]
  3. SYNTHROID [Concomitant]
  4. CALCIUM [Concomitant]
  5. HYDROCHLOROTHIAZIDE [Concomitant]

REACTIONS (4)
  - ALOPECIA [None]
  - EXTRASYSTOLES [None]
  - HYPOTHYROIDISM [None]
  - WEIGHT INCREASED [None]
